FAERS Safety Report 9408100 (Version 1)
Quarter: 2013Q3

REPORT INFORMATION
  Report Type: Spontaneous
  Country: US (occurrence: US)
  Receive Date: 20130718
  Receipt Date: 20130718
  Transmission Date: 20140515
  Serious: Yes (Other)
  Sender: FDA-Public Use
  Company Number: US-FRI-1000045752

PATIENT
  Sex: Female
  Weight: 98 kg

DRUGS (8)
  1. VIIBRYD [Suspect]
     Indication: DEPRESSION
     Dosage: 10 MG
     Dates: start: 20121112, end: 20121118
  2. VIIBRYD [Suspect]
     Dosage: 20 MG
     Dates: start: 20121119, end: 20121125
  3. VIIBRYD [Suspect]
     Dosage: 40 MG
     Dates: start: 20121126
  4. CLONAZEPAM [Concomitant]
     Dosage: 1.5 MG
  5. TERAZOSIN [Concomitant]
     Dosage: 10-15 MG QHS
  6. VISTARIL [Concomitant]
     Dosage: 50-100 MG QHS
  7. AMBIEN [Concomitant]
     Dosage: 10 MG QHS
  8. WELLBUTRIN [Concomitant]
     Dosage: 300 MG

REACTIONS (1)
  - Blood glucose decreased [Unknown]
